FAERS Safety Report 21312721 (Version 3)
Quarter: 2022Q4

REPORT INFORMATION
  Report Type: Spontaneous
  Country: US (occurrence: US)
  Receive Date: 20220909
  Receipt Date: 20221004
  Transmission Date: 20230113
  Serious: No
  Sender: FDA-Public Use
  Company Number: US-LUPIN PHARMACEUTICALS INC.-2022-10833

PATIENT
  Age: 25 Year
  Sex: Female
  Weight: 63.039 kg

DRUGS (2)
  1. NORGESTIMATE AND ETHINYL ESTRADIOL [Suspect]
     Active Substance: ETHINYL ESTRADIOL\NORGESTIMATE
     Indication: Ovarian cyst
     Dosage: 1 DOSAGE FORM, QD (0.18 MG/0.035 MG, 0.215 MG/0.035 MG AND 0.25 MG/0.035 MG)
     Route: 048
     Dates: start: 20220708
  2. SPIRONOLACTONE [Concomitant]
     Active Substance: SPIRONOLACTONE
     Indication: Androgens abnormal
     Dosage: UNK
     Route: 065

REACTIONS (8)
  - Anxiety [Unknown]
  - Mood swings [Unknown]
  - Feeling abnormal [Unknown]
  - Vaginal haemorrhage [Not Recovered/Not Resolved]
  - Vulvovaginal pain [Unknown]
  - Product dispensing error [Unknown]
  - Product substitution issue [Unknown]
  - Product use in unapproved indication [Unknown]
